FAERS Safety Report 14122268 (Version 1)
Quarter: 2017Q4

REPORT INFORMATION
  Report Type: Spontaneous
  Country: US (occurrence: US)
  Receive Date: 20171024
  Receipt Date: 20171024
  Transmission Date: 20180321
  Serious: No
  Sender: FDA-Public Use
  Company Number: US-IMPAX LABORATORIES, INC-2017-IPXL-02384

PATIENT
  Sex: Female
  Weight: 61 kg

DRUGS (2)
  1. RYTARY [Suspect]
     Active Substance: CARBIDOPA\LEVODOPA
     Indication: PARKINSON^S DISEASE
     Dosage: 48.75/95 MG, TWO CAPSULES AT EACH MEAL AND ONE CAPSULE AT BEDTIME
     Route: 048
  2. RYTARY [Suspect]
     Active Substance: CARBIDOPA\LEVODOPA
     Dosage: 48.75/95 MG, ONE CAPSULES AT EACH MEAL AND ONE CAPSULE AT BEDTIME
     Route: 048
     Dates: start: 20170602

REACTIONS (4)
  - Hallucination [Recovered/Resolved]
  - Fall [Recovering/Resolving]
  - Urinary tract infection [Recovered/Resolved]
  - Dizziness [Unknown]

NARRATIVE: CASE EVENT DATE: 2017
